FAERS Safety Report 13112742 (Version 2)
Quarter: 2017Q1

REPORT INFORMATION
  Report Type: Spontaneous
  Country: US (occurrence: US)
  Receive Date: 20170113
  Receipt Date: 20170209
  Transmission Date: 20170428
  Serious: Yes (Other)
  Sender: FDA-Public Use
  Company Number: US-ROCHE-1877771

PATIENT
  Sex: Female

DRUGS (1)
  1. XOLAIR [Suspect]
     Active Substance: OMALIZUMAB
     Indication: PRODUCT USED FOR UNKNOWN INDICATION
     Route: 064

REACTIONS (3)
  - Spina bifida [Not Recovered/Not Resolved]
  - Foetal exposure during pregnancy [Unknown]
  - Congenital spinal cord anomaly [Not Recovered/Not Resolved]

NARRATIVE: CASE EVENT DATE: 201610
